FAERS Safety Report 10506031 (Version 2)
Quarter: 2014Q4

REPORT INFORMATION
  Report Type: Report from Study
  Country: AU (occurrence: AU)
  Receive Date: 20141008
  Receipt Date: 20141008
  Transmission Date: 20150528
  Serious: Yes (Other)
  Sender: FDA-Public Use
  Company Number: AU-CELGENE-008-21880-13051547

PATIENT
  Age: 76 Year
  Sex: Female

DRUGS (10)
  1. REVLIMID [Suspect]
     Active Substance: LENALIDOMIDE
     Route: 048
     Dates: start: 20130412
  2. VIDAZA [Suspect]
     Active Substance: AZACITIDINE
     Indication: ACUTE MYELOID LEUKAEMIA
     Route: 065
     Dates: start: 2009
  3. VIDAZA [Suspect]
     Active Substance: AZACITIDINE
     Route: 065
     Dates: end: 20111109
  4. THYROXIN [Concomitant]
     Active Substance: LEVOTHYROXINE
     Indication: HYPOTHYROIDISM
     Dosage: 100 MICROGRAM
     Route: 048
  5. VITAMIN D [Concomitant]
     Active Substance: CHOLECALCIFEROL
     Indication: SUPPLEMENTATION THERAPY
     Dosage: 25 MICROGRAM
     Route: 048
  6. REVLIMID [Suspect]
     Active Substance: LENALIDOMIDE
     Indication: ACUTE MYELOID LEUKAEMIA
     Route: 048
     Dates: start: 20111128
  7. REVLIMID [Suspect]
     Active Substance: LENALIDOMIDE
     Route: 048
     Dates: start: 20140926
  8. EVEROLIMUS [Concomitant]
     Active Substance: EVEROLIMUS
     Indication: PRODUCT USED FOR UNKNOWN INDICATION
     Route: 065
     Dates: start: 2009
  9. MAGNESIUM [Concomitant]
     Active Substance: MAGNESIUM
     Indication: SUPPLEMENTATION THERAPY
     Dosage: 2000 MILLIGRAM
     Route: 048
  10. NORVASC [Concomitant]
     Active Substance: AMLODIPINE BESYLATE
     Indication: HYPERTENSION
     Dosage: 5 MILLIGRAM
     Route: 048

REACTIONS (26)
  - Cellulitis [Recovering/Resolving]
  - Basal cell carcinoma [Unknown]
  - Squamous cell carcinoma of skin [Unknown]
  - Actinic keratosis [Unknown]
  - Basal cell carcinoma [Unknown]
  - Actinic keratosis [Unknown]
  - Solar lentigo [Unknown]
  - Basal cell carcinoma [Unknown]
  - Squamous cell carcinoma of skin [Unknown]
  - Seborrhoeic keratosis [Unknown]
  - Actinic keratosis [Unknown]
  - Squamous cell carcinoma of skin [Unknown]
  - Basal cell carcinoma [Unknown]
  - Basal cell carcinoma [Unknown]
  - Solar lentigo [Unknown]
  - Scar [Unknown]
  - Squamous cell carcinoma of skin [Unknown]
  - Basal cell carcinoma [Unknown]
  - Basal cell carcinoma [Unknown]
  - Squamous cell carcinoma of skin [Unknown]
  - Basal cell carcinoma [Unknown]
  - Scar [Unknown]
  - Squamous cell carcinoma of skin [Unknown]
  - Actinic keratosis [Unknown]
  - Squamous cell carcinoma of skin [Unknown]
  - Skin lesion [Unknown]

NARRATIVE: CASE EVENT DATE: 20120203
